FAERS Safety Report 23752260 (Version 1)
Quarter: 2024Q2

REPORT INFORMATION
  Report Type: Spontaneous
  Country: JP (occurrence: JP)
  Receive Date: 20240417
  Receipt Date: 20240417
  Transmission Date: 20240715
  Serious: Yes (Other)
  Sender: FDA-Public Use
  Company Number: JP-ABBVIE-5721324

PATIENT

DRUGS (1)
  1. RINVOQ [Suspect]
     Active Substance: UPADACITINIB
     Indication: Rheumatoid arthritis
     Route: 048

REACTIONS (16)
  - Brain stem haemorrhage [Unknown]
  - Diffuse panbronchiolitis [Unknown]
  - Infarction [Unknown]
  - Interstitial lung disease [Unknown]
  - Platelet count decreased [Unknown]
  - Pneumonia [Unknown]
  - Hepatic function abnormal [Unknown]
  - Pyelonephritis [Unknown]
  - Colon cancer [Unknown]
  - Pruritus [Unknown]
  - Arterial occlusive disease [Unknown]
  - Diarrhoea [Unknown]
  - Hypoaesthesia [Unknown]
  - Herpes zoster [Unknown]
  - Drug ineffective [Unknown]
  - Therapeutic product effect decreased [Unknown]
